FAERS Safety Report 8814401 (Version 2)
Quarter: 2013Q1

REPORT INFORMATION
  Report Type: Spontaneous
  Country: US (occurrence: None)
  Receive Date: 20120926
  Receipt Date: 20130321
  Transmission Date: 20140127
  Serious: Yes (Other)
  Sender: FDA-Public Use
  Company Number: 2012-001693

PATIENT
  Age: 69 Year
  Sex: Female
  Weight: 58 kg

DRUGS (16)
  1. ACTONEL (RISEDRONATE SODIUM) TABLET, 35MG [Suspect]
     Indication: OSTEOPOROSIS
     Dosage: 35 MG ONCE WEEKLY, ORAL
     Route: 048
     Dates: start: 20040902, end: 200902
  2. ACTONEL (RISEDRONATE SODIUM) TABLET, 35MG [Suspect]
     Indication: OSTEOPOROSIS PROPHYLAXIS
     Dosage: 35 MG ONCE WEEKLY, ORAL
     Route: 048
     Dates: start: 20040902, end: 200902
  3. ACTONEL (RISEDRONATE SODIUM) TABLET, 35MG [Suspect]
     Indication: OSTEOPENIA
     Dosage: 35 MG ONCE WEEKLY, ORAL
     Route: 048
     Dates: start: 20040902, end: 200902
  4. FOSAMAX (ALENDRONATE SODIUM) [Suspect]
     Indication: OSTEOPOROSIS
     Route: 048
     Dates: start: 1998, end: 200409
  5. FOSAMAX (ALENDRONATE SODIUM) [Suspect]
     Indication: OSTEOPOROSIS PROPHYLAXIS
     Route: 048
     Dates: start: 1998, end: 200409
  6. FOSAMAX (ALENDRONATE SODIUM) [Suspect]
     Indication: OSTEOPENIA
     Route: 048
     Dates: start: 1998, end: 200409
  7. ALENDRONATE [Suspect]
     Indication: OSTEOPOROSIS
     Route: 048
     Dates: start: 20090401, end: 201103
  8. ALENDRONATE [Suspect]
     Indication: OSTEOPOROSIS PROPHYLAXIS
     Route: 048
     Dates: start: 20090401, end: 201103
  9. ALENDRONATE [Suspect]
     Indication: OSTEOPENIA
     Route: 048
     Dates: start: 20090401, end: 201103
  10. LOPID (GEMFIBROZIL) [Concomitant]
  11. COZAAR (LOSARTAN POTASSIUM) [Concomitant]
  12. NORVASC (AMLODIPINE BESILATE) [Concomitant]
  13. VANOS (FLUOCINONIDE) [Concomitant]
  14. AZITHROMYCIN (AZITHROMYCIN) [Concomitant]
  15. MEDROL  /00049601/ (METHYLPREDNISOLONE) [Concomitant]
  16. VOLTAREN   /00372301/ (DICLOFENAC) [Concomitant]

REACTIONS (9)
  - Femur fracture [None]
  - Stress fracture [None]
  - Pathological fracture [None]
  - Muscular weakness [None]
  - Pain in extremity [None]
  - Bone disorder [None]
  - Pain [None]
  - Low turnover osteopathy [None]
  - Intervertebral disc protrusion [None]
